FAERS Safety Report 7928682-8 (Version None)
Quarter: 2011Q4

REPORT INFORMATION
  Report Type: 
  Country: None (occurrence: None)
  Receive Date: 20111118
  Receipt Date: 20111111
  Transmission Date: 20120403
  Serious: Yes (Life-Threatening, Hospitalization)
  Sender: FDA-Public Use
  Company Number: JP-B.I. PHARMACEUTICALS,INC./RIDGEFIELD-2011-DE-00732GD

PATIENT
  Sex: Female
  Weight: 41 kg

DRUGS (14)
  1. MIDAZOLAM HCL [Concomitant]
     Dates: start: 20080731
  2. MUCOSTA [Concomitant]
     Dosage: 200 MG
  3. MAGNESIUM OXIDE [Concomitant]
  4. ACETAMINOPHEN [Concomitant]
  5. NEORAL [Concomitant]
     Indication: MYELODYSPLASTIC SYNDROME
     Dosage: 100 MG
  6. PYDOXAL [Concomitant]
     Dosage: 8DF
  7. FOLIC ACID [Concomitant]
     Dosage: 5 MG
  8. PURSENNID [Concomitant]
  9. NEUROVITAN /OCTOTIAMINE B2_B6_B12 COMBINED DRUG [Concomitant]
  10. MOBIC [Suspect]
     Indication: RHEUMATOID ARTHRITIS
     Dates: start: 20061101
  11. PENTAZOCINE LACTATE [Concomitant]
     Dates: start: 20080731, end: 20080731
  12. RIMATIL [Concomitant]
     Indication: RHEUMATOID ARTHRITIS
     Dosage: 4DF
  13. NEUROVITAN /OCTOTIAMINE B2_B6_B12 COMBINED DRUG [Concomitant]
  14. NORVASC [Concomitant]
     Indication: HYPERTENSION
     Dosage: 5 MG

REACTIONS (4)
  - HAEMATOCHEZIA [None]
  - SMALL INTESTINE ULCER [None]
  - ILEAL STENOSIS [None]
  - DIVERTICULUM [None]
